FAERS Safety Report 5215669-1 (Version None)
Quarter: 2007Q1

REPORT INFORMATION
  Report Type: 
  Country: None (occurrence: None)
  Receive Date: 20070123
  Receipt Date: 20070116
  Transmission Date: 20070707
  Serious: Yes (Death)
  Sender: FDA-Public Use
  Company Number: US-AVENTIS-200710368US

PATIENT
  Sex: Male

DRUGS (4)
  1. LOVENOX [Suspect]
     Indication: PROTEIN S DEFICIENCY
     Route: 064
     Dates: start: 20060807, end: 20061205
  2. PROGESTERONE [Concomitant]
     Indication: PREMATURE BABY
     Dosage: DOSE: UNK
     Route: 064
  3. PROGESTERONE [Concomitant]
     Indication: PROPHYLAXIS
     Dosage: DOSE: UNK
     Route: 064
  4. PRENATAL VITAMINS                  /01549301/ [Concomitant]
     Dosage: DOSE: UNK
     Route: 064

REACTIONS (5)
  - DEATH NEONATAL [None]
  - DRUG EXPOSURE DURING PREGNANCY [None]
  - GROWTH RETARDATION [None]
  - IMMATURE RESPIRATORY SYSTEM [None]
  - PREMATURE BABY [None]
